FAERS Safety Report 6178032-5 (Version None)
Quarter: 2009Q2

REPORT INFORMATION
  Report Type: 
  Country: None (occurrence: None)
  Receive Date: 20090504
  Receipt Date: 20090423
  Transmission Date: 20091009
  Serious: Yes (Hospitalization)
  Sender: FDA-Public Use
  Company Number: ES-ELI_LILLY_AND_COMPANY-ES200904005576

PATIENT
  Age: 86 Year
  Sex: Female

DRUGS (11)
  1. FORTEO [Suspect]
     Indication: OSTEOPOROSIS
     Dosage: 20 UG, UNKNOWN
     Route: 058
     Dates: start: 20080101, end: 20090414
  2. OMEPRAZOL [Concomitant]
     Dosage: UNK, UNKNOWN
     Route: 065
  3. SALIDUR [Concomitant]
     Dosage: UNK, UNKNOWN
     Route: 065
  4. NITROGLYCERIN [Concomitant]
     Dosage: UNK, UNKNOWN
     Route: 065
  5. CITALOPRAM HYDROBROMIDE [Concomitant]
     Dosage: UNK, UNKNOWN
     Route: 065
  6. DILTIAZEM [Concomitant]
     Dosage: UNK, UNKNOWN
     Route: 065
  7. CINAMET [Concomitant]
     Dosage: UNK, UNKNOWN
     Route: 065
  8. ENAPRIL                            /00574901/ [Concomitant]
     Dosage: UNK, UNKNOWN
     Route: 065
  9. TRANSTEC [Concomitant]
     Dosage: UNK, UNKNOWN
     Route: 065
  10. MIRAPEX [Concomitant]
     Dosage: UNK, UNKNOWN
     Route: 065
  11. ADIRO [Concomitant]
     Dosage: UNK, UNKNOWN
     Route: 065

REACTIONS (2)
  - BREAST PAIN [None]
  - PNEUMONIA [None]
